FAERS Safety Report 9999220 (Version 1)
Quarter: 2014Q1

REPORT INFORMATION
  Report Type: Spontaneous
  Country: None (occurrence: None)
  Receive Date: 20140311
  Receipt Date: 20140311
  Transmission Date: 20141002
  Serious: Yes (Life-Threatening, Hospitalization, Disabling, Other)
  Sender: FDA-Public Use
  Company Number: None

PATIENT
  Age: 53 Year
  Sex: Female
  Weight: 66 kg

DRUGS (1)
  1. LARIUM [Suspect]
     Indication: MALARIA PROPHYLAXIS
     Dosage: 1250/1?WEEKLY?TAKEN BY MOUTH
     Route: 048
     Dates: start: 20020429, end: 20020512

REACTIONS (19)
  - Confusional state [None]
  - Paranoia [None]
  - Agitation [None]
  - Abnormal behaviour [None]
  - Conversion disorder [None]
  - Fall [None]
  - Thirst [None]
  - Disorientation [None]
  - Speech disorder [None]
  - Thinking abnormal [None]
  - Somnolence [None]
  - Fatigue [None]
  - Anxiety [None]
  - Gait disturbance [None]
  - Insomnia [None]
  - Depression [None]
  - Suicidal ideation [None]
  - Photophobia [None]
  - Hyperacusis [None]
